FAERS Safety Report 6306262-8 (Version None)
Quarter: 2009Q3

REPORT INFORMATION
  Report Type: 
  Country: None (occurrence: None)
  Receive Date: 20090812
  Receipt Date: 20090731
  Transmission Date: 20100115
  Serious: Yes (Other)
  Sender: FDA-Public Use
  Company Number: PHHY2009BR31190

PATIENT
  Sex: Female
  Weight: 68 kg

DRUGS (8)
  1. FORASEQ [Suspect]
     Indication: CHRONIC OBSTRUCTIVE PULMONARY DISEASE
     Dosage: UNK
     Dates: start: 20070101
  2. FORASEQ [Suspect]
     Indication: EMPHYSEMA
     Dosage: EVERY 12 HOURS
     Dates: start: 20070901
  3. SPIRIVA [Concomitant]
  4. ENALAPRIL MALEATE [Concomitant]
     Dosage: 20 MG 1 TABLET DAILY
     Route: 048
  5. BEROTEC [Concomitant]
     Dosage: ONE DROP
     Dates: end: 20090728
  6. BEROTEC [Concomitant]
     Dosage: TWO DROPS
     Route: 030
     Dates: start: 20090730
  7. ATROVENT [Concomitant]
     Dosage: 15 DROPS
     Dates: end: 20090728
  8. ATROVENT [Concomitant]
     Dosage: 09 DROPS
     Route: 030
     Dates: start: 20090730

REACTIONS (11)
  - COUGH [None]
  - DRUG INEFFECTIVE [None]
  - DYSPNOEA [None]
  - EYELID OEDEMA [None]
  - FATIGUE [None]
  - GAIT DISTURBANCE [None]
  - MOVEMENT DISORDER [None]
  - SWELLING [None]
  - SWELLING FACE [None]
  - TREATMENT NONCOMPLIANCE [None]
  - TREMOR [None]
